FAERS Safety Report 12713580 (Version 2)
Quarter: 2016Q3

REPORT INFORMATION
  Report Type: Spontaneous
  Country: US (occurrence: US)
  Receive Date: 20160903
  Receipt Date: 20160917
  Transmission Date: 20161109
  Serious: Yes (Other)
  Sender: FDA-Public Use
  Company Number: US-SUN PHARMACEUTICAL INDUSTRIES LTD-2016US-123052

PATIENT
  Age: 44 Year
  Sex: Female

DRUGS (1)
  1. SPIRONOLACTONE. [Suspect]
     Active Substance: SPIRONOLACTONE
     Indication: PRODUCT USED FOR UNKNOWN INDICATION
     Dosage: UNK
     Route: 065
     Dates: start: 201606, end: 2016

REACTIONS (7)
  - Coeliac disease [Unknown]
  - Oral discomfort [Unknown]
  - Abscess [Unknown]
  - Dyspepsia [Unknown]
  - Product substitution issue [Unknown]
  - Stomatitis [Unknown]
  - Ulcer [Unknown]

NARRATIVE: CASE EVENT DATE: 201606
